FAERS Safety Report 13503669 (Version 1)
Quarter: 2017Q2

REPORT INFORMATION
  Report Type: Spontaneous
  Country: US (occurrence: US)
  Receive Date: 20170502
  Receipt Date: 20170502
  Transmission Date: 20170830
  Serious: Yes (Other)
  Sender: FDA-Public Use
  Company Number: US-AMGEN-USASP2017064183

PATIENT
  Age: 71 Year
  Sex: Female

DRUGS (1)
  1. PROLIA [Suspect]
     Active Substance: DENOSUMAB
     Indication: OSTEOPOROSIS POSTMENOPAUSAL
     Dosage: 60 MG, UNK
     Route: 065

REACTIONS (5)
  - Lumbar vertebral fracture [Unknown]
  - Fractured sacrum [Unknown]
  - Impaired healing [Unknown]
  - Pelvic fracture [Unknown]
  - Fall [Unknown]

NARRATIVE: CASE EVENT DATE: 201609
